FAERS Safety Report 8112284-7 (Version None)
Quarter: 2012Q1

REPORT INFORMATION
  Report Type: 
  Country: None (occurrence: None)
  Receive Date: 20120203
  Receipt Date: 20120203
  Transmission Date: 20120608
  Serious: No
  Sender: FDA-Public Use
  Company Number: None

PATIENT
  Age: 42 Year
  Sex: Female
  Weight: 51.255 kg

DRUGS (2)
  1. MINOCYCLINE HCL [Suspect]
     Indication: POSTOPERATIVE CARE
     Route: 048
     Dates: start: 20120117, end: 20120127
  2. MINOCYCLINE HCL [Suspect]
     Indication: PROPHYLAXIS
     Route: 048
     Dates: start: 20120117, end: 20120127

REACTIONS (1)
  - GINGIVAL DISCOLOURATION [None]
